FAERS Safety Report 21216703 (Version 3)
Quarter: 2022Q4

REPORT INFORMATION
  Report Type: Report from Study
  Country: BE (occurrence: BE)
  Receive Date: 20220816
  Receipt Date: 20221124
  Transmission Date: 20230113
  Serious: No
  Sender: FDA-Public Use
  Company Number: BE-NOVARTISPH-NVSC2021BE277921

PATIENT
  Age: 5 Year
  Sex: Male
  Weight: 25.7 kg

DRUGS (10)
  1. TRAMETINIB [Suspect]
     Active Substance: TRAMETINIB
     Indication: Astrocytoma
     Dosage: 0.032 MG/KG, QD (0.8 MG) (SIROP)
     Route: 048
     Dates: start: 20210628, end: 20210725
  2. TRAMETINIB [Suspect]
     Active Substance: TRAMETINIB
     Indication: Glioma
     Dosage: 0.6 MG, QD
     Route: 048
     Dates: start: 20210726, end: 20210816
  3. TRAMETINIB [Suspect]
     Active Substance: TRAMETINIB
     Indication: Metastases to meninges
     Dosage: 0.8 MG, QD
     Route: 048
     Dates: start: 20210817, end: 20210901
  4. TRAMETINIB [Suspect]
     Active Substance: TRAMETINIB
     Dosage: 0.4 MG, QD
     Route: 048
     Dates: start: 20210913, end: 20210920
  5. TRAMETINIB [Suspect]
     Active Substance: TRAMETINIB
     Dosage: 0.55 MG, QD
     Route: 048
     Dates: start: 20210921, end: 20211025
  6. TRAMETINIB [Suspect]
     Active Substance: TRAMETINIB
     Dosage: 0.6 MG, QD
     Route: 048
     Dates: start: 20211026, end: 20220328
  7. TRAMETINIB [Suspect]
     Active Substance: TRAMETINIB
     Dosage: 0.025 MG/KG, QD (0.55MG)
     Route: 048
     Dates: start: 20220329, end: 20220425
  8. TRAMETINIB [Suspect]
     Active Substance: TRAMETINIB
     Dosage: 5 MG
     Route: 065
     Dates: start: 202204
  9. CHOLECALCIFEROL [Concomitant]
     Active Substance: CHOLECALCIFEROL
     Indication: Product used for unknown indication
     Dosage: UNK
     Route: 065
  10. DECAPEPTYL [Concomitant]
     Indication: Product used for unknown indication
     Dosage: 5.625 MG, Q3MO
     Route: 030

REACTIONS (7)
  - Skin toxicity [Recovered/Resolved]
  - Haematotoxicity [Recovered/Resolved]
  - Impetigo [Recovered/Resolved]
  - Eyelid oedema [Recovered/Resolved]
  - Alopecia [Recovered/Resolved]
  - Paronychia [Unknown]
  - Skin lesion [Unknown]

NARRATIVE: CASE EVENT DATE: 20210726
